FAERS Safety Report 7598625-8 (Version None)
Quarter: 2011Q3

REPORT INFORMATION
  Report Type: 
  Country: None (occurrence: None)
  Receive Date: 20110710
  Receipt Date: 20110706
  Transmission Date: 20111222
  Serious: Yes (Death)
  Sender: FDA-Public Use
  Company Number: DE-AMGEN-DEUSP2011034113

PATIENT
  Age: 57 Year
  Sex: Female
  Weight: 100 kg

DRUGS (1)
  1. NPLATE [Suspect]
     Indication: IDIOPATHIC THROMBOCYTOPENIC PURPURA
     Dosage: 100 A?G, ONE TIME DOSE
     Route: 058
     Dates: start: 20101220, end: 20101220

REACTIONS (5)
  - HEPATIC FAILURE [None]
  - OEDEMA [None]
  - DYSPNOEA [None]
  - HYPERTENSIVE CRISIS [None]
  - CARDIOVASCULAR INSUFFICIENCY [None]
